FAERS Safety Report 19908438 (Version 1)
Quarter: 2021Q4

REPORT INFORMATION
  Report Type: Other
  Country: CZ (occurrence: CZ)
  Receive Date: 20211001
  Receipt Date: 20211001
  Transmission Date: 20220303
  Serious: Yes (Other)
  Sender: FDA-Public Use
  Company Number: CZ-MERCK HEALTHCARE KGAA-9266723

PATIENT
  Sex: Male

DRUGS (1)
  1. INTERFERON BETA NOS [Suspect]
     Active Substance: INTERFERON BETA
     Indication: Multiple sclerosis
     Dates: start: 1999

REACTIONS (3)
  - Multiple sclerosis relapse [Unknown]
  - Cerebral atrophy [Recovering/Resolving]
  - Drug ineffective [Unknown]
